FAERS Safety Report 18857048 (Version 2)
Quarter: 2021Q1

REPORT INFORMATION
  Report Type: Report from Study
  Country: None (occurrence: DO)
  Receive Date: 20210208
  Receipt Date: 20210305
  Transmission Date: 20210420
  Serious: Yes (Other)
  Sender: FDA-Public Use
  Company Number: DO-ABBVIE-21K-279-3724283-00

PATIENT
  Age: 44 Year
  Sex: Female
  Weight: 78 kg

DRUGS (1)
  1. HUMIRA [Suspect]
     Active Substance: ADALIMUMAB
     Indication: RHEUMATOID ARTHRITIS
     Route: 058
     Dates: start: 20170726

REACTIONS (11)
  - Musculoskeletal pain [Recovering/Resolving]
  - Cough [Not Recovered/Not Resolved]
  - Pain in extremity [Recovering/Resolving]
  - Spinal pain [Recovered/Resolved]
  - Lower respiratory tract congestion [Recovered/Resolved]
  - Chest pain [Recovered/Resolved]
  - Asthenia [Recovering/Resolving]
  - Haemoptysis [Recovered/Resolved]
  - Asphyxia [Recovered/Resolved]
  - Choking [Recovered/Resolved]
  - Coronavirus infection [Recovering/Resolving]

NARRATIVE: CASE EVENT DATE: 20201229
